FAERS Safety Report 11691137 (Version 1)
Quarter: 2015Q4

REPORT INFORMATION
  Report Type: Report from Study
  Country: IT (occurrence: IT)
  Receive Date: 20151102
  Receipt Date: 20151102
  Transmission Date: 20160304
  Serious: Yes (Other)
  Sender: FDA-Public Use
  Company Number: PHHY2015IT135853

PATIENT
  Age: 22 Year
  Sex: Male
  Weight: 48 kg

DRUGS (2)
  1. CREON [Concomitant]
     Active Substance: PANCRELIPASE AMYLASE\PANCRELIPASE LIPASE\PANCRELIPASE PROTEASE
     Indication: PANCREATIC DISORDER
     Route: 065
  2. TOBI PODHALER [Suspect]
     Active Substance: TOBRAMYCIN
     Indication: CYSTIC FIBROSIS
     Dosage: 8 DF (CAPSULES)
     Route: 055
     Dates: start: 20130618

REACTIONS (1)
  - Drug resistance [Not Recovered/Not Resolved]

NARRATIVE: CASE EVENT DATE: 20131219
